FAERS Safety Report 20520794 (Version 1)
Quarter: 2022Q1

REPORT INFORMATION
  Report Type: Spontaneous
  Country: IT (occurrence: IT)
  Receive Date: 20220225
  Receipt Date: 20220225
  Transmission Date: 20220423
  Serious: Yes (Other)
  Sender: FDA-Public Use
  Company Number: IT-ALFAWASS-2017-6342

PATIENT
  Age: 84 Year
  Sex: Female
  Weight: 45 kg

DRUGS (9)
  1. RIFAXIMIN [Suspect]
     Active Substance: RIFAXIMIN
     Indication: Diverticulitis
     Route: 048
     Dates: start: 20170518, end: 20170520
  2. NEBIVOLOL [Concomitant]
     Active Substance: NEBIVOLOL
     Indication: Hypertension
     Route: 048
     Dates: end: 20170605
  3. RISEDRONATE SODIUM [Concomitant]
     Active Substance: RISEDRONATE SODIUM
     Indication: Osteoporosis
     Route: 048
     Dates: end: 20170605
  4. LANOXIN [Concomitant]
     Active Substance: DIGOXIN
     Indication: Hypertensive heart disease
     Route: 048
     Dates: end: 20170605
  5. DEURSIL [Concomitant]
     Active Substance: URSODIOL
     Indication: Product used for unknown indication
     Dosage: RIGID CAPSULE
     Route: 048
     Dates: end: 20170605
  6. COUMADIN [Concomitant]
     Active Substance: WARFARIN SODIUM
     Indication: Atrial fibrillation
     Dosage: DIVISIBLE TABLETS
     Route: 048
     Dates: end: 20170605
  7. FENTALGON [Concomitant]
     Indication: Product used for unknown indication
     Route: 062
     Dates: end: 20170605
  8. PECFENT [Concomitant]
     Active Substance: FENTANYL CITRATE
     Indication: Product used for unknown indication
     Dosage: 100MCH/DIE NASA
     Route: 045
     Dates: end: 20170605
  9. POLYETHYLENE GLYCOL 3350\POTASSIUM CHLORIDE\SODIUM BICARBONATE\SODIUM [Concomitant]
     Active Substance: POLYETHYLENE GLYCOL 3350\POTASSIUM CHLORIDE\SODIUM BICARBONATE\SODIUM CHLORIDE
     Indication: Product used for unknown indication
     Route: 048

REACTIONS (2)
  - Dermo-hypodermitis [Recovering/Resolving]
  - Dermatitis bullous [Recovering/Resolving]

NARRATIVE: CASE EVENT DATE: 20170520
